FAERS Safety Report 7825257 (Version 2)
Quarter: 2012Q4

REPORT INFORMATION
  Report Type: 
  Country: US (occurrence: US)
  Receive Date: 20110224
  Receipt Date: 20121025
  Transmission Date: 20130627
  Serious: Yes (Other)
  Sender: FDA-Public Use
  Company Number: US-ROCHE-738995

PATIENT
  Age: 32 Year
  Sex: Female
  Weight: 59 kg

DRUGS (2)
  1. ACCUTANE [Suspect]
     Indication: ACNE
     Route: 065
     Dates: start: 19970101, end: 19980101
  2. ACCUTANE [Suspect]
     Dosage: 20 MG 3 DAILY
     Route: 065
     Dates: start: 19980422, end: 199809

REACTIONS (11)
  - Colitis ulcerative [Unknown]
  - Crohn^s disease [Unknown]
  - Anxiety [Not Recovered/Not Resolved]
  - Gastrointestinal injury [Unknown]
  - Inflammatory bowel disease [Unknown]
  - Haemorrhoids [Unknown]
  - Polyp [Unknown]
  - Irritable bowel syndrome [Unknown]
  - Lip dry [Unknown]
  - Chloasma [Unknown]
  - Dry skin [Unknown]
